FAERS Safety Report 18097372 (Version 3)
Quarter: 2021Q1

REPORT INFORMATION
  Report Type: Spontaneous
  Country: US (occurrence: US)
  Receive Date: 20200731
  Receipt Date: 20210209
  Transmission Date: 20210419
  Serious: No
  Sender: FDA-Public Use
  Company Number: US-SA-2020SA198849

PATIENT
  Age: 59 Year
  Sex: Male

DRUGS (1)
  1. DUPIXENT [Suspect]
     Active Substance: DUPILUMAB
     Indication: DERMATITIS ATOPIC
     Dosage: 300 MG, QOW
     Route: 058
     Dates: start: 20200511

REACTIONS (5)
  - Weight decreased [Unknown]
  - Dermatitis atopic [Not Recovered/Not Resolved]
  - Vomiting [Unknown]
  - Anaemia macrocytic [Unknown]
  - Nausea [Unknown]

NARRATIVE: CASE EVENT DATE: 2020
